FAERS Safety Report 9500597 (Version 1)
Quarter: 2013Q3

REPORT INFORMATION
  Report Type: Spontaneous
  Country: US (occurrence: US)
  Receive Date: 20130905
  Receipt Date: 20130905
  Transmission Date: 20140515
  Serious: Yes (Hospitalization, Other)
  Sender: FDA-Public Use
  Company Number: US-JNJFOC-20130900043

PATIENT
  Sex: 0

DRUGS (6)
  1. REMICADE [Suspect]
     Indication: CROHN^S DISEASE
     Route: 042
  2. HUMIRA [Suspect]
     Indication: CROHN^S DISEASE
     Route: 065
  3. CIMZIA [Suspect]
     Indication: CROHN^S DISEASE
     Route: 065
  4. PREDNISONE [Suspect]
     Indication: CROHN^S DISEASE
     Route: 065
  5. IMURAN [Suspect]
     Indication: CROHN^S DISEASE
     Route: 065
  6. 6MP [Suspect]
     Indication: CROHN^S DISEASE
     Route: 065

REACTIONS (2)
  - Abdominal operation [Unknown]
  - Hospitalisation [Unknown]
